FAERS Safety Report 4312379-X (Version None)
Quarter: 2004Q1

REPORT INFORMATION
  Report Type: 
  Country: None (occurrence: None)
  Receive Date: 20040303
  Receipt Date: 20040219
  Transmission Date: 20041129
  Serious: Yes (Other)
  Sender: FDA-Public Use
  Company Number: IT-SHR-04-021461

PATIENT
  Age: 57 Year
  Sex: Male

DRUGS (5)
  1. FLUDARA [Suspect]
     Indication: NON-HODGKIN'S LYMPHOMA
     Dosage: 45 MG, 1X/DAY, INTRAVENOUS
     Route: 042
     Dates: start: 20040107, end: 20040109
  2. CYCLOPHOSPHAMIDE [Suspect]
     Indication: NON-HODGKIN'S LYMPHOMA
     Dosage: 540 MG, 1X/DAY, INTRAVENOUS
     Route: 042
     Dates: start: 20040107, end: 20040109
  3. ZYLORIC ^GLAXO WELLCOME^ [Concomitant]
  4. BACTRIM DS [Concomitant]
  5. ZOVIRAX [Concomitant]

REACTIONS (3)
  - DERMATITIS EXFOLIATIVE [None]
  - HYPERPYREXIA [None]
  - RASH ERYTHEMATOUS [None]
